FAERS Safety Report 16719637 (Version 1)
Quarter: 2019Q3

REPORT INFORMATION
  Report Type: Spontaneous
  Country: US (occurrence: US)
  Receive Date: 20190702
  Receipt Date: 20190702
  Transmission Date: 20191005
  Serious: Yes (Hospitalization)
  Sender: FDA-Public Use
  Company Number: None

PATIENT
  Sex: Female

DRUGS (5)
  1. BISOPROL [Concomitant]
     Active Substance: BISOPROLOL FUMARATE
  2. ENBREL [Suspect]
     Active Substance: ETANERCEPT
     Indication: INFERTILITY
     Route: 058
     Dates: start: 20190416
  3. METFORMIN [Concomitant]
     Active Substance: METFORMIN HYDROCHLORIDE
  4. BACLOFEN. [Concomitant]
     Active Substance: BACLOFEN
  5. ATORVASTATIN [Concomitant]
     Active Substance: ATORVASTATIN

REACTIONS (2)
  - Spinal operation [None]
  - Therapy cessation [None]
